FAERS Safety Report 9599056 (Version 1)
Quarter: 2013Q4

REPORT INFORMATION
  Report Type: Spontaneous
  Country: US (occurrence: US)
  Receive Date: 20131004
  Receipt Date: 20131004
  Transmission Date: 20140711
  Serious: Yes (Hospitalization, Other)
  Sender: FDA-Public Use
  Company Number: US-AMGEN-USASP2013026871

PATIENT
  Age: 34 Year
  Sex: Male

DRUGS (2)
  1. ENBREL [Suspect]
     Indication: PSORIATIC ARTHROPATHY
     Dosage: 50 MG, QWK
     Dates: start: 20011001, end: 201212
  2. ENBREL [Suspect]
     Indication: PSORIASIS

REACTIONS (5)
  - Abdominal infection [Recovered/Resolved]
  - Abscess intestinal [Recovered/Resolved]
  - Plantar fasciitis [Not Recovered/Not Resolved]
  - Musculoskeletal discomfort [Not Recovered/Not Resolved]
  - Swelling [Not Recovered/Not Resolved]
